FAERS Safety Report 9060627 (Version 1)
Quarter: 2013Q1

REPORT INFORMATION
  Report Type: Spontaneous
  Country: US (occurrence: US)
  Receive Date: 20130212
  Receipt Date: 20130212
  Transmission Date: 20140127
  Serious: No
  Sender: FDA-Public Use
  Company Number: US-009507513-1302USA001942

PATIENT
  Sex: Male

DRUGS (2)
  1. JANUVIA [Suspect]
     Route: 048
  2. PIOGLITAZONE HYDROCHLORIDE [Concomitant]

REACTIONS (3)
  - Somnolence [Unknown]
  - Hypertension [Unknown]
  - Dizziness [Unknown]
